FAERS Safety Report 18927832 (Version 1)
Quarter: 2021Q1

REPORT INFORMATION
  Report Type: Spontaneous
  Country: US (occurrence: US)
  Receive Date: 20210223
  Receipt Date: 20210223
  Transmission Date: 20210420
  Serious: No
  Sender: FDA-Public Use
  Company Number: US-BAYER-2021-077566

PATIENT
  Sex: Female

DRUGS (1)
  1. CLARITIN LIQUI?GELS [Suspect]
     Active Substance: LORATADINE
     Route: 065

REACTIONS (2)
  - Dry throat [Unknown]
  - Drug ineffective [Unknown]
